FAERS Safety Report 7069083 (Version 2)
Quarter: 2014Q2

REPORT INFORMATION
  Report Type: Spontaneous
  Country: US (occurrence: None)
  Receive Date: 20090724
  Receipt Date: 20140508
  Transmission Date: 20141212
  Serious: Yes (Other)
  Sender: FDA-Public Use
  Company Number: 2009S1005510

PATIENT
  Age: 60 Year
  Sex: Female

DRUGS (2)
  1. FLEET PHOSPHO-SODA ORAL SALINE LAXATIVE, GINGER-LEMON FLAVOR [Suspect]
     Indication: COLONOSCOPY
     Route: 048
     Dates: start: 20061001, end: 20061001
  2. DULCOLAX (BISACODYL) [Suspect]
     Indication: COLONOSCOPY
     Route: 048
     Dates: start: 20061001, end: 20061001

REACTIONS (21)
  - Renal impairment [None]
  - Dysgeusia [None]
  - Nausea [None]
  - Hypophagia [None]
  - Weight decreased [None]
  - Sensory disturbance [None]
  - Condition aggravated [None]
  - Feeling hot [None]
  - Renal failure acute [None]
  - Pruritus [None]
  - Eructation [None]
  - Dyspepsia [None]
  - Abdominal distension [None]
  - Acute phosphate nephropathy [None]
  - Renal failure chronic [None]
  - Hyperparathyroidism secondary [None]
  - Nocturia [None]
  - Muscle spasms [None]
  - Nephrogenic anaemia [None]
  - Inappropriate schedule of drug administration [None]
  - Feeling abnormal [None]
